FAERS Safety Report 4816848-5 (Version None)
Quarter: 2005Q4

REPORT INFORMATION
  Report Type: 
  Country: None (occurrence: None)
  Receive Date: 20051101
  Receipt Date: 20051021
  Transmission Date: 20060501
  Serious: Yes (Other)
  Sender: FDA-Public Use
  Company Number: US-JNJFOC-20051004999

PATIENT
  Sex: Female
  Weight: 68.95 kg

DRUGS (1)
  1. REMICADE [Suspect]
     Indication: RHEUMATOID ARTHRITIS
     Route: 042

REACTIONS (4)
  - APHONIA [None]
  - HERNIA [None]
  - PHARYNGOLARYNGEAL PAIN [None]
  - VOMITING [None]
